FAERS Safety Report 8539345 (Version 2)
Quarter: 2016Q4

REPORT INFORMATION
  Report Type: Spontaneous
  Country: US (occurrence: US)
  Receive Date: 20120501
  Receipt Date: 20161215
  Transmission Date: 20170207
  Serious: Yes (Other)
  Sender: FDA-Public Use
  Company Number: US-ROCHE-792815

PATIENT
  Sex: Male
  Weight: 49.94 kg

DRUGS (1)
  1. ACCUTANE [Suspect]
     Active Substance: ISOTRETINOIN
     Indication: ACNE
     Route: 065
     Dates: start: 19890101, end: 19921231

REACTIONS (9)
  - Suicide attempt [Unknown]
  - Depression [Unknown]
  - Inflammatory bowel disease [Unknown]
  - Stress [Unknown]
  - Colitis [Unknown]
  - Colitis microscopic [Unknown]
  - Suicidal ideation [Unknown]
  - Crohn^s disease [Unknown]
  - Gastric ulcer [Unknown]

NARRATIVE: CASE EVENT DATE: 1994
